FAERS Safety Report 15823812 (Version 1)
Quarter: 2019Q1

REPORT INFORMATION
  Report Type: Spontaneous
  Country: US (occurrence: US)
  Receive Date: 20190114
  Receipt Date: 20190114
  Transmission Date: 20190417
  Serious: Yes (Other)
  Sender: FDA-Public Use
  Company Number: US-PFIZER INC-2019018231

PATIENT
  Age: 56 Year
  Sex: Female
  Weight: 76.19 kg

DRUGS (1)
  1. IBRANCE [Suspect]
     Active Substance: PALBOCICLIB
     Indication: BREAST CANCER
     Dosage: 75 MG, CYCLIC (D 1-21 Q28 DAYS)
     Route: 048

REACTIONS (1)
  - Leukopenia [Unknown]
